FAERS Safety Report 15357155 (Version 1)
Quarter: 2018Q3

REPORT INFORMATION
  Report Type: Spontaneous
  Country: US (occurrence: US)
  Receive Date: 20180830
  Receipt Date: 20180830
  Transmission Date: 20181010
  Serious: Yes (Hospitalization)
  Sender: FDA-Public Use
  Company Number: None

PATIENT
  Age: 67 Year
  Sex: Male

DRUGS (1)
  1. ENTECAVIR 0.5MG TAB [Suspect]
     Active Substance: ENTECAVIR
     Indication: HEPATITIS C
     Route: 048
     Dates: start: 20180105

REACTIONS (1)
  - Neoplasm [None]

NARRATIVE: CASE EVENT DATE: 20180803
